FAERS Safety Report 6382975-7 (Version None)
Quarter: 2009Q3

REPORT INFORMATION
  Report Type: 
  Country: None (occurrence: None)
  Receive Date: 20090928
  Receipt Date: 20090928
  Transmission Date: 20100115
  Serious: Yes (Other)
  Sender: FDA-Public Use
  Company Number: None

PATIENT
  Sex: Male
  Weight: 88.6 kg

DRUGS (2)
  1. CYMBALTA [Suspect]
     Indication: NEURALGIA
     Dosage: 60 MG QD PO
     Route: 048
     Dates: start: 20090501
  2. CYMBALTA [Suspect]
     Indication: NEURALGIA
     Dosage: 60 MG QD PO
     Route: 048
     Dates: start: 20090610

REACTIONS (1)
  - DEAFNESS [None]
